FAERS Safety Report 9383210 (Version 1)
Quarter: 2013Q3

REPORT INFORMATION
  Report Type: Spontaneous
  Country: US (occurrence: US)
  Receive Date: 20130704
  Receipt Date: 20130704
  Transmission Date: 20140515
  Serious: Yes (Hospitalization)
  Sender: FDA-Public Use
  Company Number: US-BIOGENIDEC-2007BI024231

PATIENT
  Age: 54 Year
  Sex: Female

DRUGS (2)
  1. AVONEX [Suspect]
     Indication: MULTIPLE SCLEROSIS
     Route: 030
     Dates: start: 20030601, end: 20080201
  2. AVONEX [Suspect]
     Indication: MULTIPLE SCLEROSIS
     Route: 030
     Dates: start: 20100227, end: 20111101

REACTIONS (6)
  - Arthropathy [Recovered/Resolved]
  - Knee arthroplasty [Recovered/Resolved]
  - Balance disorder [Not Recovered/Not Resolved]
  - Shoulder operation [Recovered/Resolved]
  - Spinal disorder [Not Recovered/Not Resolved]
  - Back disorder [Not Recovered/Not Resolved]
